FAERS Safety Report 26006336 (Version 2)
Quarter: 2025Q4

REPORT INFORMATION
  Report Type: Report from Study
  Country: CH (occurrence: CH)
  Receive Date: 20251106
  Receipt Date: 20251225
  Transmission Date: 20260118
  Serious: Yes (Other)
  Sender: REGENERON
  Company Number: CH-BAYER-2025A144959

PATIENT
  Sex: Female

DRUGS (10)
  1. EYLEA HD [Suspect]
     Active Substance: AFLIBERCEPT
     Indication: Neovascular age-related macular degeneration
     Dosage: 70 UL, SOLUTION FOR INJECTION, 114.3 MG/ML
     Dates: start: 20240513
  2. EYLEA HD [Suspect]
     Active Substance: AFLIBERCEPT
     Dosage: 70 UL, SOLUTION FOR INJECTION, 114.3 MG/ML
     Dates: start: 20240610
  3. EYLEA HD [Suspect]
     Active Substance: AFLIBERCEPT
     Dosage: 70 UL, SOLUTION FOR INJECTION, 114.3 MG/ML
     Dates: start: 20240715
  4. EYLEA HD [Suspect]
     Active Substance: AFLIBERCEPT
     Dosage: 70 UL, SOLUTION FOR INJECTION, 114.3 MG/ML
     Dates: start: 20240917
  5. EYLEA HD [Suspect]
     Active Substance: AFLIBERCEPT
     Dosage: 70 UL, SOLUTION FOR INJECTION, 114.3 MG/ML
     Dates: start: 20241015
  6. EYLEA HD [Suspect]
     Active Substance: AFLIBERCEPT
     Dosage: 70 UL, SOLUTION FOR INJECTION, 114.3 MG/ML
     Dates: start: 20241015
  7. EYLEA HD [Suspect]
     Active Substance: AFLIBERCEPT
     Dosage: 70 UL, SOLUTION FOR INJECTION, 114.3 MG/ML
     Dates: start: 20241121
  8. PHENPROCOUMON [Concomitant]
     Active Substance: PHENPROCOUMON
     Indication: Multimorbidity
     Dosage: 1 DF
     Dates: start: 2007
  9. AMLODIPINE BESYLATE\OLMESARTAN MEDOXOMIL [Concomitant]
     Active Substance: AMLODIPINE BESYLATE\OLMESARTAN MEDOXOMIL
     Indication: Multimorbidity
     Dosage: 1 DF
     Dates: start: 2014
  10. ZOLPIDEM TARTRATE [Concomitant]
     Active Substance: ZOLPIDEM TARTRATE
     Indication: Multimorbidity
     Dosage: 15 MG
     Dates: start: 2007

REACTIONS (2)
  - Epiretinal membrane [Recovered/Resolved]
  - Retinal tear [Recovered/Resolved]

NARRATIVE: CASE EVENT DATE: 20241121
